FAERS Safety Report 8677432 (Version 5)
Quarter: 2012Q4

REPORT INFORMATION
  Report Type: 
  Country: US (occurrence: US)
  Receive Date: 20120723
  Receipt Date: 20121129
  Transmission Date: 20130627
  Serious: Yes (Hospitalization, Other)
  Sender: FDA-Public Use
  Company Number: PHEH2005US014208

PATIENT
  Age: 64 None
  Sex: Female
  Weight: 71 kg

DRUGS (57)
  1. AREDIA [Suspect]
     Indication: BREAST CANCER METASTATIC
     Dosage: 90 mg, QMO
     Route: 042
     Dates: start: 19960603, end: 2002
  2. ZOMETA [Suspect]
     Dosage: 4 mg  Q3-4 WKS
     Route: 042
     Dates: start: 20020604, end: 20040915
  3. FOSAMAX [Suspect]
  4. IMITREX [Concomitant]
     Indication: MIGRAINE
  5. ADRIAMYCIN [Concomitant]
     Indication: BREAST CANCER METASTATIC
     Dates: start: 199705
  6. TAXOL [Concomitant]
     Indication: BREAST CANCER METASTATIC
     Dates: start: 199705
  7. G-CSF [Concomitant]
     Indication: GRANULOCYTE COUNT DECREASED
     Dates: start: 199708
  8. MEGACE [Concomitant]
     Indication: HOT FLUSH
  9. TAMOXIFEN [Concomitant]
     Indication: BREAST CANCER
     Route: 048
     Dates: start: 199605
  10. ULTRAM [Concomitant]
     Indication: DISCOMFORT
  11. TAXOTERE [Concomitant]
     Indication: OVARIAN CANCER
     Dates: start: 2003, end: 2003
  12. CARBOPLATIN [Concomitant]
     Indication: OVARIAN CANCER
     Dosage: 200 mg every week for 3 weeks
     Dates: start: 200305, end: 20030724
  13. CARBOPLATIN [Concomitant]
     Dosage: 100 mg, ONCE/SINGLE
     Dates: start: 20030724, end: 20030724
  14. CARBOPLATIN [Concomitant]
     Dosage: 500 mg, ONCE/SINGLE
     Dates: start: 20030731, end: 20030731
  15. ARIMIDEX [Concomitant]
     Indication: BREAST CANCER
     Dosage: 1 mg, QD
  16. ERYTHROPOIETIN [Concomitant]
  17. CHEMOTHERAPEUTICS,OTHER [Concomitant]
  18. 5-FU [Concomitant]
     Indication: NEOPLASM MALIGNANT
     Dosage: 1050 mg, UNK
  19. DECADRON [Concomitant]
     Dosage: 10 mg, UNK
  20. METHOTREXATE [Concomitant]
     Indication: NEOPLASM MALIGNANT
  21. FLUID/ELECTROLYTE REPLACEMENT THERAPY [Concomitant]
     Indication: PROPHYLAXIS
  22. KYTRIL [Concomitant]
     Indication: PROPHYLAXIS
     Dosage: 1 mg, UNK
  23. BENADRYL [Concomitant]
     Indication: PROPHYLAXIS
     Dosage: 50 mg, UNK
  24. TAGAMET [Concomitant]
     Indication: PROPHYLAXIS
     Dosage: 300 mg, UNK
  25. TORECAN [Concomitant]
     Dosage: 10 mg, every 4-6 hours PRN
     Dates: start: 19970516
  26. ANZEMET [Concomitant]
  27. CIMETIDINE [Concomitant]
  28. MITOXANTRONE HYDROCHLORIDE [Concomitant]
  29. ETODOLAC [Concomitant]
     Dosage: 400 mg, Q8H
  30. MAXALT-MLT [Concomitant]
     Dosage: 10 mg, UNK
  31. ALPRAZOLAM [Concomitant]
     Dosage: 0.5 mg, UNK
  32. NASACORT AQ [Concomitant]
  33. MEGASTROL [Concomitant]
  34. CELEBREX [Concomitant]
  35. AVELOX [Concomitant]
  36. FLAGYL [Concomitant]
  37. PENICILLIN VK [Concomitant]
  38. DIFLUCAN [Concomitant]
  39. NEURONTIN [Concomitant]
  40. TORADOL [Concomitant]
  41. MS CONTIN [Concomitant]
  42. COMPAZINE [Concomitant]
  43. DURAGESIC [Concomitant]
  44. AMIFOSTINE [Concomitant]
  45. DILANTIN                                /AUS/ [Concomitant]
  46. ATIVAN [Concomitant]
  47. RESTORIL [Concomitant]
  48. AMBIEN [Concomitant]
  49. DARVOCET-N [Concomitant]
  50. LOMOTIL [Concomitant]
  51. ATENOLOL [Concomitant]
  52. CLARITIN [Concomitant]
  53. LEVAQUIN [Concomitant]
  54. PRIMADEX [Concomitant]
  55. ASPIRIN [Concomitant]
  56. COUMADINE [Concomitant]
  57. AMITRIPTYLINE [Concomitant]

REACTIONS (102)
  - Deep vein thrombosis [Unknown]
  - Oedema peripheral [Unknown]
  - Tenderness [Unknown]
  - Osteonecrosis of jaw [Recovering/Resolving]
  - Soft tissue disorder [Unknown]
  - Bone disorder [Recovering/Resolving]
  - Purulent discharge [Recovering/Resolving]
  - Impaired healing [Recovering/Resolving]
  - Fistula [Recovering/Resolving]
  - Bone density decreased [Unknown]
  - Swelling [Recovering/Resolving]
  - Pain in jaw [Not Recovered/Not Resolved]
  - Tooth disorder [Recovering/Resolving]
  - Hypoaesthesia [Unknown]
  - Alpha haemolytic streptococcal infection [Unknown]
  - Gingival bleeding [Unknown]
  - Osteosclerosis [Unknown]
  - Stomatocytes present [Recovered/Resolved]
  - Primary sequestrum [Unknown]
  - Ulcer [Unknown]
  - Ovarian cancer [Unknown]
  - Agranulocytosis [Unknown]
  - White blood cell count decreased [Unknown]
  - Lung neoplasm malignant [Unknown]
  - Abdominal pain [Unknown]
  - Colitis [Unknown]
  - Nausea [Unknown]
  - Vomiting [Unknown]
  - Neoplasm [Unknown]
  - Blood glucose increased [Unknown]
  - Haematochezia [Unknown]
  - Rib fracture [Unknown]
  - Injury [Unknown]
  - Liver function test abnormal [Unknown]
  - Blood alkaline phosphatase increased [Unknown]
  - Platelet count decreased [Unknown]
  - Heart valve incompetence [Unknown]
  - Bacterial infection [Unknown]
  - Inflammation [Unknown]
  - Periodontal disease [Unknown]
  - Rhinitis [Unknown]
  - Hepatic cyst [Unknown]
  - Diverticulum intestinal [Unknown]
  - Aortic arteriosclerosis [Unknown]
  - Radicular pain [Unknown]
  - Oral pain [Unknown]
  - Oedema mucosal [Unknown]
  - Paraesthesia oral [Unknown]
  - Osteolysis [Unknown]
  - Intervertebral disc protrusion [Unknown]
  - Cervical spinal stenosis [Unknown]
  - Exostosis [Unknown]
  - Oral mucosal erythema [Unknown]
  - Onychomycosis [Unknown]
  - Onychalgia [Unknown]
  - Tendonitis [Unknown]
  - Asthenia [Unknown]
  - Arthralgia [Unknown]
  - Epicondylitis [Unknown]
  - Bursitis [Unknown]
  - Synovial cyst [Unknown]
  - Synovitis [Unknown]
  - Accident at work [Unknown]
  - Pain in extremity [Unknown]
  - Arthroscopy [Unknown]
  - Osteoarthritis [Unknown]
  - Carpal tunnel syndrome [Unknown]
  - Neck pain [Unknown]
  - Foreign body [Unknown]
  - Hypoaesthesia oral [Unknown]
  - Ligament rupture [Unknown]
  - Stress fracture [Unknown]
  - Neuropathy peripheral [Unknown]
  - Tenosynovitis [Unknown]
  - Radiculopathy [Unknown]
  - Gastrointestinal haemorrhage [Unknown]
  - Atrophy [Unknown]
  - Paraesthesia [Unknown]
  - Sleep disorder [Unknown]
  - Spinal osteoarthritis [Unknown]
  - Gait disturbance [Unknown]
  - Chronic sinusitis [Unknown]
  - Gallbladder polyp [Unknown]
  - Dyspnoea [Unknown]
  - Arthritis [Unknown]
  - Multiple fractures [Unknown]
  - Cholelithiasis [Unknown]
  - C-reactive protein increased [Unknown]
  - QRS axis abnormal [Unknown]
  - Left ventricular hypertrophy [Unknown]
  - Radiculitis [Unknown]
  - Lumbar spinal stenosis [Unknown]
  - Enthesopathy [Unknown]
  - Post laminectomy syndrome [Unknown]
  - Eyelid ptosis [Unknown]
  - Cutis laxa [Unknown]
  - Hyperhidrosis [Unknown]
  - Tinnitus [Unknown]
  - Chest pain [Unknown]
  - Articular calcification [Unknown]
  - Arthropathy [Unknown]
  - Plantar fasciitis [Unknown]
